FAERS Safety Report 9850874 (Version 2)
Quarter: 2014Q2

REPORT INFORMATION
  Report Type: Spontaneous
  Country: BR (occurrence: BR)
  Receive Date: 20140128
  Receipt Date: 20140423
  Transmission Date: 20141212
  Serious: Yes (Hospitalization, Other)
  Sender: FDA-Public Use
  Company Number: BR-PFIZER INC-2014024686

PATIENT
  Age: 81 Year
  Sex: Female

DRUGS (9)
  1. ATENOLOL [Suspect]
     Indication: HYPERTENSION
     Dosage: UNK
     Route: 048
  2. BRILINTA [Suspect]
     Dosage: 90 MG, 2X/DAY
     Route: 048
     Dates: start: 20121201
  3. GLIFAGE [Suspect]
     Indication: DIABETES MELLITUS
     Dosage: UNK
     Route: 048
     Dates: start: 201312
  4. GLIFAGE [Suspect]
     Dosage: UNK
     Dates: start: 201401
  5. ENALAPRIL MALEATE [Concomitant]
     Indication: HYPERTENSION
     Dosage: UNK
     Route: 048
     Dates: end: 2014
  6. ASA [Concomitant]
     Dosage: UNK
  7. ATORVASTATIN CALCIUM [Concomitant]
     Dosage: UNK
  8. AMLODIPINE BESYLATE [Concomitant]
     Dosage: UNK
  9. GLIMEPIRIDE [Concomitant]
     Indication: DIABETES MELLITUS
     Dosage: UNK
     Route: 048
     Dates: start: 201312

REACTIONS (3)
  - Diabetes mellitus inadequate control [Recovered/Resolved]
  - Type 2 diabetes mellitus [Recovering/Resolving]
  - Blood pressure inadequately controlled [Unknown]
